FAERS Safety Report 5142671-0 (Version None)
Quarter: 2006Q4

REPORT INFORMATION
  Report Type: 
  Country: None (occurrence: None)
  Receive Date: 20061027
  Receipt Date: 20061025
  Transmission Date: 20070319
  Serious: Yes (Disabling)
  Sender: FDA-Public Use
  Company Number: 06H-163-0310822-00

PATIENT
  Age: 37 Year
  Sex: Female

DRUGS (1)
  1. HEPARIN SODIUM [Suspect]
     Indication: PROTEIN C DEFICIENCY
     Dosage: NOT REPORTED

REACTIONS (7)
  - ARTHRALGIA [None]
  - FALL [None]
  - FEMORAL NERVE PALSY [None]
  - RETROPERITONEAL HAEMORRHAGE [None]
  - SENSORY DISTURBANCE [None]
  - SOFT TISSUE DISORDER [None]
  - SWELLING [None]
